FAERS Safety Report 25086117 (Version 1)
Quarter: 2025Q1

REPORT INFORMATION
  Report Type: Spontaneous
  Country: US (occurrence: US)
  Receive Date: 20250317
  Receipt Date: 20250317
  Transmission Date: 20250408
  Serious: Yes (Death)
  Sender: PFIZER
  Company Number: US-PFIZER INC-202500057965

PATIENT
  Age: 70 Year
  Sex: Female

DRUGS (9)
  1. XALKORI [Suspect]
     Active Substance: CRIZOTINIB
     Dates: start: 20250212, end: 20250307
  2. ONDANSETRON [Concomitant]
     Active Substance: ONDANSETRON
  3. OLANZAPINE [Concomitant]
     Active Substance: OLANZAPINE
  4. LANTUS SOLOSTAR [Concomitant]
     Active Substance: INSULIN GLARGINE
  5. CARVEDILOL [Concomitant]
     Active Substance: CARVEDILOL
  6. ZETIA [Concomitant]
     Active Substance: EZETIMIBE
  7. ROSUVASTATIN [Concomitant]
     Active Substance: ROSUVASTATIN
  8. LEVOTHYROXINE [Concomitant]
     Active Substance: LEVOTHYROXINE
  9. HYDROCHLOROTHIAZIDE\LISINOPRIL [Concomitant]
     Active Substance: HYDROCHLOROTHIAZIDE\LISINOPRIL

REACTIONS (1)
  - Malignant neoplasm progression [Fatal]

NARRATIVE: CASE EVENT DATE: 20250307
